FAERS Safety Report 6709904-8 (Version None)
Quarter: 2010Q2

REPORT INFORMATION
  Report Type: 
  Country: None (occurrence: None)
  Receive Date: 20100503
  Receipt Date: 20100503
  Transmission Date: 20101027
  Serious: Yes (Hospitalization)
  Sender: FDA-Public Use
  Company Number: None

PATIENT
  Sex: Male
  Weight: 7.7111 kg

DRUGS (2)
  1. CONCENTRATED TYLENOL INFANT DROPS [Suspect]
     Indication: PYREXIA
     Dosage: 0.8 EVERY 4 HOURS PO
     Route: 048
     Dates: start: 20100408, end: 20100502
  2. CONCENTRATED TYLENOL INFANT DROPS [Suspect]
     Indication: TEETHING
     Dosage: 0.8 EVERY 4 HOURS PO
     Route: 048
     Dates: start: 20100408, end: 20100502

REACTIONS (6)
  - CRYING [None]
  - DISCOMFORT [None]
  - FATIGUE [None]
  - FEBRILE CONVULSION [None]
  - PRODUCT QUALITY ISSUE [None]
  - SOMNOLENCE [None]
